FAERS Safety Report 24180841 (Version 3)
Quarter: 2024Q3

REPORT INFORMATION
  Report Type: Spontaneous
  Country: CN (occurrence: CN)
  Receive Date: 20240806
  Receipt Date: 20240814
  Transmission Date: 20241017
  Serious: Yes (Life-Threatening, Other)
  Sender: MERCK
  Company Number: CN-009507513-2408CHN001023

PATIENT
  Age: 49 Year
  Sex: Female

DRUGS (1)
  1. KEYTRUDA [Suspect]
     Active Substance: PEMBROLIZUMAB
     Dosage: 200 MG, ONCE
     Route: 041
     Dates: start: 20240705, end: 20240705

REACTIONS (3)
  - Myelosuppression [Recovering/Resolving]
  - Malignant neoplasm progression [Unknown]
  - Expired product administered [Unknown]

NARRATIVE: CASE EVENT DATE: 20240701
